FAERS Safety Report 4445027-9 (Version None)
Quarter: 2004Q3

REPORT INFORMATION
  Report Type: 
  Country: None (occurrence: None)
  Receive Date: 20040903
  Receipt Date: 20040825
  Transmission Date: 20050211
  Serious: No
  Sender: FDA-Public Use
  Company Number: 2004RL000096

PATIENT
  Age: 66 Year
  Sex: Male
  Weight: 68.0396 kg

DRUGS (8)
  1. DYNACIRC [Suspect]
     Indication: HYPERTENSION
     Dosage: 5 MG; QD; ORAL
     Route: 048
     Dates: start: 20040820, end: 20040820
  2. DYNACIRC CR [Suspect]
     Indication: HYPERTENSION
     Dosage: 5 MG; QD; ORAL
     Route: 048
     Dates: start: 20040811, end: 20040817
  3. HYDROCHLOROTHIAZIDE [Concomitant]
  4. ATENOLOL [Concomitant]
  5. ACCUPRIL [Concomitant]
  6. LODINE [Concomitant]
  7. VITAMIN E [Concomitant]
  8. ATENOLOL [Concomitant]

REACTIONS (4)
  - ASTHENIA [None]
  - HEART RATE DECREASED [None]
  - LOSS OF CONSCIOUSNESS [None]
  - SYNCOPE [None]
